FAERS Safety Report 8264770-7 (Version None)
Quarter: 2012Q2

REPORT INFORMATION
  Report Type: 
  Country: None (occurrence: None)
  Receive Date: 20120406
  Receipt Date: 20120324
  Transmission Date: 20120825
  Serious: Yes (Death)
  Sender: FDA-Public Use
  Company Number: IT-CELGENEUS-083-21880-12033214

PATIENT

DRUGS (2)
  1. REVLIMID [Suspect]
     Indication: LYMPHOMA
     Dosage: 20 MILLIGRAM
     Route: 048
     Dates: start: 20100519, end: 20100609
  2. METHYLPREDNISOLONE [Concomitant]
     Indication: LYMPHOMA
     Route: 065

REACTIONS (1)
  - DEATH [None]
